FAERS Safety Report 19454232 (Version 1)
Quarter: 2021Q2

REPORT INFORMATION
  Report Type: Report from Study
  Country: NZ (occurrence: NZ)
  Receive Date: 20210623
  Receipt Date: 20210623
  Transmission Date: 20210717
  Serious: Yes (Other)
  Sender: FDA-Public Use
  Company Number: NVSC2021NZ067315

PATIENT
  Age: 52 Year
  Sex: Female

DRUGS (5)
  1. COSENTYX [Suspect]
     Active Substance: SECUKINUMAB
     Indication: PSORIASIS
     Dosage: 300 MG, QW
     Route: 058
     Dates: start: 20210303
  2. METHOTREXATE. [Suspect]
     Active Substance: METHOTREXATE
     Indication: PRODUCT USED FOR UNKNOWN INDICATION
     Dosage: UNK UNK, UNKNOWN
     Route: 065
  3. COSENTYX [Suspect]
     Active Substance: SECUKINUMAB
     Indication: PSORIASIS
     Dosage: 300 MG, QMO
     Route: 058
  4. COSENTYX [Suspect]
     Active Substance: SECUKINUMAB
     Indication: PSORIATIC ARTHROPATHY
  5. HUMIRA [Suspect]
     Active Substance: ADALIMUMAB
     Indication: PRODUCT USED FOR UNKNOWN INDICATION
     Dosage: UNK UNK, UNKNOWN
     Route: 065

REACTIONS (13)
  - Joint swelling [Recovering/Resolving]
  - Oral herpes [Recovered/Resolved]
  - Rhinorrhoea [Recovered/Resolved]
  - Oral herpes [Recovering/Resolving]
  - Rash erythematous [Recovering/Resolving]
  - Psoriatic arthropathy [Unknown]
  - Psoriasis [Not Recovered/Not Resolved]
  - Injection site discomfort [Unknown]
  - Therapeutic response shortened [Unknown]
  - Seasonal allergy [Unknown]
  - Pruritus [Not Recovered/Not Resolved]
  - Lethargy [Unknown]
  - Periorbital swelling [Unknown]

NARRATIVE: CASE EVENT DATE: 202103
